FAERS Safety Report 7832979 (Version 4)
Quarter: 2013Q1

REPORT INFORMATION
  Report Type: Report from Study
  Country: US (occurrence: US)
  Receive Date: 20110228
  Receipt Date: 20130204
  Transmission Date: 20140127
  Serious: Yes (Other)
  Sender: FDA-Public Use
  Company Number: PHHO2011US03515

PATIENT
  Age: 58 Year
  Sex: Male
  Weight: 86.2 kg

DRUGS (3)
  1. ZOMETA [Suspect]
     Indication: PLASMA CELL MYELOMA
     Dosage: 4 MG, EVERY 3 MONTHS
     Route: 042
     Dates: start: 20090331, end: 20110216
  2. CALCIUM [Concomitant]
  3. VITAMIN D [Concomitant]

REACTIONS (4)
  - Osteonecrosis of jaw [Recovering/Resolving]
  - Tooth infection [Recovered/Resolved]
  - Tooth injury [Recovering/Resolving]
  - Oral cavity fistula [Recovering/Resolving]
